FAERS Safety Report 5306377-7 (Version None)
Quarter: 2007Q2

REPORT INFORMATION
  Report Type: 
  Country: None (occurrence: None)
  Receive Date: 20070417
  Receipt Date: 20070406
  Transmission Date: 20071010
  Serious: Yes (Death, Other)
  Sender: FDA-Public Use
  Company Number: 2007314443

PATIENT
  Age: 4 Month
  Sex: Male

DRUGS (1)
  1. PSEUDOEPHEDRINE HCL [Suspect]

REACTIONS (3)
  - APNOEA [None]
  - CARDIAC ARREST [None]
  - SUDDEN INFANT DEATH SYNDROME [None]
